FAERS Safety Report 13443133 (Version 2)
Quarter: 2017Q2

REPORT INFORMATION
  Report Type: Spontaneous
  Country: US (occurrence: US)
  Receive Date: 20170414
  Receipt Date: 20170601
  Transmission Date: 20170830
  Serious: No
  Sender: FDA-Public Use
  Company Number: US-009507513-1703USA011840

PATIENT
  Sex: Female

DRUGS (1)
  1. NUVARING [Suspect]
     Active Substance: ETHINYL ESTRADIOL\ETONOGESTREL
     Dosage: UNK
     Route: 067

REACTIONS (4)
  - No adverse event [Unknown]
  - Device expulsion [Unknown]
  - Device expulsion [Unknown]
  - Product quality issue [Unknown]

NARRATIVE: CASE EVENT DATE: 201703
